FAERS Safety Report 22677772 (Version 2)
Quarter: 2025Q2

REPORT INFORMATION
  Report Type: Spontaneous
  Country: US (occurrence: US)
  Receive Date: 20230706
  Receipt Date: 20250428
  Transmission Date: 20250716
  Serious: No
  Sender: VERTEX
  Company Number: US-VERTEX PHARMACEUTICALS-2023-009466

PATIENT
  Sex: Female
  Weight: 62 kg

DRUGS (7)
  1. TRIKAFTA [Suspect]
     Active Substance: ELEXACAFTOR\IVACAFTOR\TEZACAFTOR
     Indication: Cystic fibrosis
     Dosage: 2 ORANGE TABLETS AM AND 1 BLUE TABLET PM
     Route: 048
     Dates: start: 2022, end: 2022
  2. TRIKAFTA [Suspect]
     Active Substance: ELEXACAFTOR\IVACAFTOR\TEZACAFTOR
     Dosage: 1 ORANGE TAB AM AND 1 BLUE TAB PM
     Route: 048
     Dates: start: 202208, end: 202210
  3. TRIKAFTA [Suspect]
     Active Substance: ELEXACAFTOR\IVACAFTOR\TEZACAFTOR
     Route: 048
     Dates: start: 202210
  4. PANCREAZE [Concomitant]
     Active Substance: PANCRELIPASE AMYLASE\PANCRELIPASE LIPASE\PANCRELIPASE PROTEASE
  5. PULMOZYME [Concomitant]
     Active Substance: DORNASE ALFA
  6. SODIUM CHLORIDE [Concomitant]
     Active Substance: SODIUM CHLORIDE
  7. ALBUTEROL SULFATE [Concomitant]
     Active Substance: ALBUTEROL SULFATE

REACTIONS (5)
  - Anxiety [Recovering/Resolving]
  - Panic attack [Recovering/Resolving]
  - Liver function test increased [Unknown]
  - Rash [Unknown]
  - Anger [Unknown]

NARRATIVE: CASE EVENT DATE: 20220101
